FAERS Safety Report 19646265 (Version 1)
Quarter: 2021Q3

REPORT INFORMATION
  Report Type: Spontaneous
  Country: US (occurrence: US)
  Receive Date: 20210802
  Receipt Date: 20210802
  Transmission Date: 20211014
  Serious: No
  Sender: FDA-Public Use
  Company Number: US-ASTRAZENECA-2021A620191

PATIENT
  Sex: Female

DRUGS (4)
  1. TRAZODONE [Concomitant]
     Active Substance: TRAZODONE HYDROCHLORIDE
     Indication: INSOMNIA
  2. BREZTRI AEROSPHERE [Suspect]
     Active Substance: BUDESONIDE\FORMOTEROL\GLYCOPYRRONIUM
     Indication: ASTHMA
     Dosage: 2 PUFFS BID
     Route: 055
     Dates: start: 20210629
  3. SYMBICORT [Suspect]
     Active Substance: BUDESONIDE\FORMOTEROL FUMARATE DIHYDRATE
     Indication: ASTHMA
     Dosage: 80/4.5 1 PUFF BID
     Route: 055
     Dates: start: 20210403
  4. CLARATIN [Concomitant]
     Indication: MULTIPLE ALLERGIES

REACTIONS (6)
  - Throat irritation [Unknown]
  - Off label use [Unknown]
  - Dyspnoea [Unknown]
  - Asthma [Unknown]
  - Oropharyngeal pain [Recovering/Resolving]
  - Intentional device misuse [Unknown]
